FAERS Safety Report 14112614 (Version 1)
Quarter: 2017Q4

REPORT INFORMATION
  Report Type: Report from Study
  Country: None (occurrence: AU)
  Receive Date: 20171021
  Receipt Date: 20171021
  Transmission Date: 20180321
  Serious: Yes (Hospitalization, Other)
  Sender: FDA-Public Use
  Company Number: AU-ABBVIE-17S-008-2133608-00

PATIENT
  Age: 82 Year
  Sex: Male

DRUGS (1)
  1. LUCRIN DEPOT [Suspect]
     Active Substance: LEUPROLIDE ACETATE
     Indication: PROSTATE CANCER
     Route: 030

REACTIONS (14)
  - Breast enlargement [Unknown]
  - Hot flush [Unknown]
  - Pollakiuria [Unknown]
  - Dyspnoea [Unknown]
  - Dry skin [Unknown]
  - Anal incontinence [Unknown]
  - Incontinence [Unknown]
  - Prostate cancer metastatic [Unknown]
  - Tinnitus [Unknown]
  - Gout [Unknown]
  - Peripheral swelling [Unknown]
  - Gait inability [Unknown]
  - Fatigue [Unknown]
  - Dizziness [Unknown]

NARRATIVE: CASE EVENT DATE: 201709
